FAERS Safety Report 23863067 (Version 8)
Quarter: 2024Q3

REPORT INFORMATION
  Report Type: Report from Study
  Country: CA (occurrence: CA)
  Receive Date: 20240516
  Receipt Date: 20240723
  Transmission Date: 20241017
  Serious: Yes (Other)
  Sender: JOHNSON AND JOHNSON
  Company Number: CA-JNJFOC-20240385170

PATIENT
  Age: 55 Year
  Sex: Female
  Weight: 117 kg

DRUGS (2)
  1. REMICADE [Suspect]
     Active Substance: INFLIXIMAB
     Indication: Rheumatoid arthritis
     Dosage: EXPIRY: 30-SEP-2026
     Route: 041
     Dates: start: 20120731
  2. METHOTREXATE [Concomitant]
     Active Substance: METHOTREXATE
     Dosage: 5 TABLETS, EVERY WEEKLY
     Route: 048

REACTIONS (4)
  - Uterine haemorrhage [Unknown]
  - Abdominal neoplasm [Not Recovered/Not Resolved]
  - Dysmenorrhoea [Unknown]
  - Amenorrhoea [Recovered/Resolved]

NARRATIVE: CASE EVENT DATE: 20240201
